FAERS Safety Report 18366499 (Version 1)
Quarter: 2020Q4

REPORT INFORMATION
  Report Type: Spontaneous
  Country: CH (occurrence: CH)
  Receive Date: 20201009
  Receipt Date: 20201009
  Transmission Date: 20210114
  Serious: Yes (Other)
  Sender: FDA-Public Use
  Company Number: CH-009507513-2010CHE002293

PATIENT

DRUGS (1)
  1. KEYTRUDA [Suspect]
     Active Substance: PEMBROLIZUMAB
     Indication: BLADDER TRANSITIONAL CELL CARCINOMA
     Dosage: UNKNOWN

REACTIONS (4)
  - Immune-mediated hepatitis [Not Recovered/Not Resolved]
  - Immune-mediated nephritis [Unknown]
  - Immune-mediated cholangitis [Not Recovered/Not Resolved]
  - Immune-mediated pneumonitis [Recovering/Resolving]
